FAERS Safety Report 14892113 (Version 1)
Quarter: 2018Q2

REPORT INFORMATION
  Report Type: Spontaneous
  Country: CN (occurrence: CN)
  Receive Date: 20180514
  Receipt Date: 20180514
  Transmission Date: 20180711
  Serious: Yes (Hospitalization)
  Sender: FDA-Public Use
  Company Number: CN-SA-2018SA132094

PATIENT
  Age: 53 Year
  Sex: Male
  Weight: 47 kg

DRUGS (3)
  1. FLEXPEN [Concomitant]
     Active Substance: UNSPECIFIED INGREDIENT
     Dates: start: 20160720, end: 20180307
  2. NOVORAPID [Suspect]
     Active Substance: INSULIN ASPART
     Indication: DIABETES MELLITUS MANAGEMENT
     Route: 058
     Dates: start: 20160720, end: 20180307
  3. LANTUS [Suspect]
     Active Substance: INSULIN GLARGINE
     Indication: DIABETES MELLITUS MANAGEMENT
     Route: 058
     Dates: start: 20160722, end: 20180307

REACTIONS (9)
  - Generalised erythema [Unknown]
  - Drug eruption [Recovering/Resolving]
  - Hospitalisation [Recovered/Resolved]
  - Pruritus [Unknown]
  - Headache [Unknown]
  - Flushing [Unknown]
  - Drug ineffective [Unknown]
  - Generalised oedema [Unknown]
  - Skin exfoliation [Unknown]

NARRATIVE: CASE EVENT DATE: 2018
